FAERS Safety Report 21126614 (Version 1)
Quarter: 2022Q3

REPORT INFORMATION
  Report Type: Spontaneous
  Country: CA (occurrence: CA)
  Receive Date: 20220725
  Receipt Date: 20220725
  Transmission Date: 20221027
  Serious: Yes (Hospitalization)
  Sender: FDA-Public Use
  Company Number: CA-TEVA-2022-CA-2056543

PATIENT
  Age: 64 Year
  Sex: Female

DRUGS (2)
  1. SUMATRIPTAN [Suspect]
     Active Substance: SUMATRIPTAN
     Indication: Migraine
     Dosage: 100 MILLIGRAM DAILY;
     Route: 048
  2. CLOBETASOL PROPIONATE [Concomitant]
     Active Substance: CLOBETASOL PROPIONATE
     Indication: Product used for unknown indication

REACTIONS (8)
  - Arteriospasm coronary [Unknown]
  - Dizziness [Unknown]
  - Electrocardiogram change [Unknown]
  - Hypoaesthesia [Unknown]
  - Palpitations [Unknown]
  - Paraesthesia [Unknown]
  - Presyncope [Unknown]
  - Troponin increased [Unknown]
